FAERS Safety Report 6360089-X (Version None)
Quarter: 2009Q3

REPORT INFORMATION
  Report Type: 
  Country: None (occurrence: None)
  Receive Date: 20090917
  Receipt Date: 20090910
  Transmission Date: 20100115
  Serious: Yes (Disabling)
  Sender: FDA-Public Use
  Company Number: PHHY2009IT31908

PATIENT
  Age: 68 Year
  Sex: Male

DRUGS (13)
  1. ZOMETA [Suspect]
     Indication: PROSTATE CANCER
     Dosage: UNK
     Dates: start: 20071001, end: 20081231
  2. LYRICA [Concomitant]
  3. TACHIPIRINA [Concomitant]
  4. OXYCONTIN [Concomitant]
  5. CARDIOASPIRINA [Concomitant]
  6. FERRO-GRAD [Concomitant]
  7. LEUPROLIDE ACETATE [Concomitant]
  8. DELTACORTENE [Concomitant]
     Dosage: 5 MG, UNK
     Route: 048
  9. RANIDIL [Concomitant]
  10. ZOFRAN [Concomitant]
  11. NORMASE [Concomitant]
  12. ARANESP [Concomitant]
  13. CALCICOLD 3 [Concomitant]

REACTIONS (2)
  - BONE DISORDER [None]
  - OSTEONECROSIS [None]
